FAERS Safety Report 18414312 (Version 1)
Quarter: 2020Q4

REPORT INFORMATION
  Report Type: Spontaneous
  Country: US (occurrence: US)
  Receive Date: 20201022
  Receipt Date: 20201022
  Transmission Date: 20210114
  Serious: Yes (Other)
  Sender: FDA-Public Use
  Company Number: US-BTGSP-US-BTGSP-20-0159

PATIENT
  Age: 88 Year
  Sex: Female

DRUGS (3)
  1. DIGIFAB [Suspect]
     Active Substance: OVINE DIGOXIN IMMUNE FAB
     Indication: TOXICITY TO VARIOUS AGENTS
     Dosage: UNK
     Route: 065
  2. CARVEDILOL HCL [Concomitant]
     Indication: ATRIAL FIBRILLATION
     Dosage: UNKNOWN
  3. DIGOXIN. [Concomitant]
     Active Substance: DIGOXIN
     Indication: ATRIAL FIBRILLATION
     Dosage: UNKNOWN

REACTIONS (4)
  - Sinus node dysfunction [Unknown]
  - Tachyarrhythmia [Unknown]
  - Bradyarrhythmia [Unknown]
  - Atrioventricular block second degree [Unknown]
